FAERS Safety Report 8232984-8 (Version None)
Quarter: 2012Q1

REPORT INFORMATION
  Report Type: 
  Country: None (occurrence: None)
  Receive Date: 20120326
  Receipt Date: 20120319
  Transmission Date: 20120608
  Serious: Yes (Life-Threatening, Hospitalization)
  Sender: FDA-Public Use
  Company Number: US-AMGEN-USASP2012017772

PATIENT
  Age: 46 Year
  Sex: Female
  Weight: 81.6 kg

DRUGS (4)
  1. PEGFILGRASTIM [Suspect]
     Indication: UTERINE LEIOMYOSARCOMA
     Dosage: 6 MG, AFTER CHEMO
     Route: 058
     Dates: start: 20110923, end: 20111001
  2. DOCETAXEL [Suspect]
     Indication: UTERINE LEIOMYOSARCOMA
     Dosage: 75 MG/M2, PER CHEMO REGIM
     Route: 042
     Dates: start: 20110923, end: 20110930
  3. BEVACIZUMAB [Suspect]
     Indication: UTERINE LEIOMYOSARCOMA
     Dosage: UNK
     Route: 042
     Dates: start: 20110923
  4. GEMCITABINE [Suspect]
     Indication: UTERINE LEIOMYOSARCOMA
     Dosage: 900 MG/M2, PER CHEMO REGIM
     Route: 042
     Dates: start: 20110923, end: 20110930

REACTIONS (3)
  - ANAEMIA [None]
  - SEPSIS [None]
  - PYREXIA [None]
